FAERS Safety Report 7983600-1 (Version None)
Quarter: 2011Q4

REPORT INFORMATION
  Report Type: 
  Country: None (occurrence: None)
  Receive Date: 20111215
  Receipt Date: 20111212
  Transmission Date: 20120403
  Serious: Yes (Hospitalization)
  Sender: FDA-Public Use
  Company Number: PHHY2011CA102799

PATIENT
  Sex: Female

DRUGS (3)
  1. ZOLEDRONOC ACID [Suspect]
     Indication: OSTEOPOROSIS
     Dosage: UNK UKN, UNK
     Route: 042
     Dates: start: 20101118
  2. CELEBREX [Concomitant]
     Dosage: UNK UKN, UNK
  3. ZOLEDRONOC ACID [Suspect]
     Dosage: UNK UKN, UNK
     Route: 042
     Dates: start: 20111118

REACTIONS (8)
  - HYPERTENSION [None]
  - BONE PAIN [None]
  - HEADACHE [None]
  - BREAST DISCOMFORT [None]
  - CYSTITIS [None]
  - ARTHRALGIA [None]
  - PYREXIA [None]
  - CHILLS [None]
